FAERS Safety Report 6063611-6 (Version None)
Quarter: 2009Q1

REPORT INFORMATION
  Report Type: 
  Country: None (occurrence: None)
  Receive Date: 20090203
  Receipt Date: 20090119
  Transmission Date: 20090719
  Serious: Yes (Death)
  Sender: FDA-Public Use
  Company Number: FR-GENENTECH-276512

PATIENT
  Sex: Female

DRUGS (1)
  1. MABTHERA [Suspect]
     Indication: LUPUS NEPHRITIS
     Dosage: 90 MG, 1/WEEK
     Route: 042
     Dates: start: 20080908, end: 20080929

REACTIONS (1)
  - SHOCK [None]
